FAERS Safety Report 23403661 (Version 1)
Quarter: 2024Q1

REPORT INFORMATION
  Report Type: Spontaneous
  Country: ZA (occurrence: None)
  Receive Date: 20240116
  Receipt Date: 20240116
  Transmission Date: 20240410
  Serious: Yes (Hospitalization, Other)
  Sender: FDA-Public Use
  Company Number: 2024A008300

PATIENT
  Age: 49 Year
  Sex: Female

DRUGS (7)
  1. DAPAGLIFLOZIN PROPANEDIOL [Suspect]
     Active Substance: DAPAGLIFLOZIN PROPANEDIOL
     Route: 048
  2. OPTISULIN [Concomitant]
  3. PERINDOPRIL [Concomitant]
     Active Substance: PERINDOPRIL
  4. METFORMIN HYDROCHLORIDE [Concomitant]
     Active Substance: METFORMIN HYDROCHLORIDE
  5. GLICLAZIDE [Concomitant]
     Active Substance: GLICLAZIDE
  6. MYLAN INDAPAMIDE [Concomitant]
  7. OPTISULIN [Concomitant]

REACTIONS (1)
  - Myocardial infarction [Unknown]
